FAERS Safety Report 9311220 (Version 1)
Quarter: 2013Q2

REPORT INFORMATION
  Report Type: Spontaneous
  Country: FR (occurrence: FR)
  Receive Date: 20130528
  Receipt Date: 20130528
  Transmission Date: 20140414
  Serious: Yes (Hospitalization)
  Sender: FDA-Public Use
  Company Number: FR-JNJFOC-20130514641

PATIENT
  Age: 88 Year
  Sex: Male

DRUGS (9)
  1. XARELTO [Suspect]
     Indication: PRODUCT USED FOR UNKNOWN INDICATION
     Route: 065
     Dates: start: 20130320, end: 20130323
  2. KARDEGIC [Suspect]
     Indication: PRODUCT USED FOR UNKNOWN INDICATION
     Route: 065
  3. BRONCHODUAL [Concomitant]
     Route: 065
  4. DIPROSONE [Concomitant]
     Route: 065
  5. FUROSEMIDE [Concomitant]
     Route: 065
  6. TIAPRIDAL [Concomitant]
     Route: 065
  7. SERETIDE [Concomitant]
     Route: 065
  8. SPIRIVA [Concomitant]
     Route: 065
  9. SERESTA [Concomitant]
     Route: 065

REACTIONS (2)
  - Urinary retention [Recovered/Resolved]
  - Haematuria [Recovered/Resolved]
